FAERS Safety Report 6680139-0 (Version None)
Quarter: 2010Q2

REPORT INFORMATION
  Report Type: 
  Country: None (occurrence: None)
  Receive Date: 20100413
  Receipt Date: 20100405
  Transmission Date: 20101027
  Serious: Yes (Other)
  Sender: FDA-Public Use
  Company Number: US-PFIZER INC-2010044438

PATIENT
  Sex: Female
  Weight: 70.3 kg

DRUGS (5)
  1. NEURONTIN [Suspect]
     Dosage: UNK
  2. GEODON [Suspect]
     Dosage: UNK
  3. CELEBREX [Concomitant]
     Dosage: UNK
  4. LAMICTAL [Concomitant]
     Dosage: UNK
  5. WELLBUTRIN [Concomitant]
     Dosage: UNK

REACTIONS (4)
  - ROAD TRAFFIC ACCIDENT [None]
  - TARDIVE DYSKINESIA [None]
  - TENDON RUPTURE [None]
  - TRANSIENT ISCHAEMIC ATTACK [None]
